FAERS Safety Report 8213520-9 (Version None)
Quarter: 2012Q1

REPORT INFORMATION
  Report Type: 
  Country: None (occurrence: None)
  Receive Date: 20120315
  Receipt Date: 20120305
  Transmission Date: 20120608
  Serious: Yes (Life-Threatening, Hospitalization)
  Sender: FDA-Public Use
  Company Number: FR-RB-038024-12

PATIENT
  Sex: Male
  Weight: 90 kg

DRUGS (1)
  1. SUBUTEX [Suspect]
     Indication: DRUG DEPENDENCE
     Route: 042
     Dates: end: 20120101

REACTIONS (4)
  - INTERVERTEBRAL DISCITIS [None]
  - STAPHYLOCOCCAL SEPSIS [None]
  - ENDOPHTHALMITIS [None]
  - ENDOCARDITIS [None]
